FAERS Safety Report 9514350 (Version 2)
Quarter: 2013Q3

REPORT INFORMATION
  Report Type: Report from Study
  Country: FR (occurrence: FR)
  Receive Date: 20130911
  Receipt Date: 20130911
  Transmission Date: 20140515
  Serious: Yes (Hospitalization, Other)
  Sender: FDA-Public Use
  Company Number: PHHY2013FR022423

PATIENT
  Age: 66 Year
  Sex: Male

DRUGS (14)
  1. NEORAL [Suspect]
     Indication: IMMUNOSUPPRESSION
     Dosage: UNK
     Dates: start: 20100814
  2. NEORAL [Suspect]
     Dosage: 100 MG, BID
     Dates: start: 20110329, end: 20110503
  3. NEORAL [Suspect]
     Dosage: 175 MG, QD
     Dates: start: 20110504, end: 20110504
  4. NEORAL [Suspect]
     Dosage: 75 MG, BID
     Dates: start: 20110505
  5. NEORAL [Suspect]
     Dosage: UNK
     Dates: end: 20120711
  6. MYCOPHENOLIC ACID [Suspect]
     Indication: IMMUNOSUPPRESSION
     Dosage: 1440 MG, BID
     Route: 048
     Dates: start: 20100608, end: 20120724
  7. CERTICAN [Suspect]
     Indication: IMMUNOSUPPRESSION
     Dates: start: 20100608, end: 20100608
  8. CORTANCYL [Concomitant]
     Indication: IMMUNOSUPPRESSION
     Dosage: UNK
     Dates: start: 20100331
  9. CORTANCYL [Concomitant]
     Dosage: 5 MG, QD
     Route: 048
     Dates: start: 20110505
  10. CORTANCYL [Concomitant]
     Dosage: UNK
     Dates: end: 20110706
  11. CORTANCYL [Concomitant]
     Dosage: UNK
     Dates: start: 20120713, end: 20120716
  12. CORTANCYL [Concomitant]
     Dosage: UNK
     Dates: start: 20120718, end: 201301
  13. SOLUMEDROL [Concomitant]
     Indication: IMMUNOSUPPRESSION
     Dates: start: 20120707, end: 20120712
  14. SOLUMEDROL [Concomitant]
     Dosage: UNK
     Dates: start: 20120717, end: 20120717

REACTIONS (9)
  - Kidney transplant rejection [Not Recovered/Not Resolved]
  - Renal impairment [Not Recovered/Not Resolved]
  - Renal failure acute [Recovered/Resolved]
  - Cytomegalovirus infection [Recovered/Resolved]
  - Oedema peripheral [Recovered/Resolved]
  - Pollakiuria [Unknown]
  - Gastrointestinal disorder [Recovered/Resolved]
  - Blood creatinine increased [Recovered/Resolved]
  - Liver function test abnormal [Recovered/Resolved]
